FAERS Safety Report 14221346 (Version 2)
Quarter: 2017Q4

REPORT INFORMATION
  Report Type: Spontaneous
  Country: US (occurrence: US)
  Receive Date: 20171124
  Receipt Date: 20171213
  Transmission Date: 20180321
  Serious: No
  Sender: FDA-Public Use
  Company Number: US-PFIZER INC-2017503653

PATIENT
  Age: 66 Year
  Sex: Male

DRUGS (8)
  1. TAPAZOLE [Suspect]
     Active Substance: METHIMAZOLE
     Indication: BASEDOW^S DISEASE
     Dosage: 25 MG, 1X/DAY
     Dates: start: 20170913, end: 20171018
  2. MAGNESIUM [Concomitant]
     Active Substance: MAGNESIUM
     Dosage: 500 MG, MONTHLY
  3. POTASSIUM [Concomitant]
     Active Substance: POTASSIUM
     Dosage: 99 MG, WEEKLY
  4. VITAMIN B COMPLEX [Concomitant]
     Active Substance: CYANOCOBALAMIN\DEXPANTHENOL\NIACINAMIDE\PYRIDOXINE HYDROCHLORIDE\RIBOFLAVIN 5^-PHOSPHATE SODIUM\THIAMINE HYDROCHLORIDE\VITAMIN B COMPLEX
     Dosage: 50 MG, 1X/DAY
  5. TAPAZOLE [Suspect]
     Active Substance: METHIMAZOLE
     Dosage: 10 MG, 2X/DAY
     Dates: start: 20171114
  6. TAPAZOLE [Suspect]
     Active Substance: METHIMAZOLE
     Dosage: 30 MG, 1X/DAY
     Dates: start: 20171018, end: 20171107
  7. COENZYME Q10 [Concomitant]
     Active Substance: UBIDECARENONE
     Dosage: 100 MG, 1X/DAY
  8. FISH OIL [Concomitant]
     Active Substance: FISH OIL
     Dosage: 1200 MG, 1X/DAY [1200 MG (360 MG ONCE A 3) ONCE A DAY]

REACTIONS (1)
  - Ageusia [Not Recovered/Not Resolved]

NARRATIVE: CASE EVENT DATE: 20171020
